FAERS Safety Report 7333115-9 (Version None)
Quarter: 2011Q1

REPORT INFORMATION
  Report Type: 
  Country: None (occurrence: None)
  Receive Date: 20110304
  Receipt Date: 20110221
  Transmission Date: 20110831
  Serious: Yes (Hospitalization, Other)
  Sender: FDA-Public Use
  Company Number: PHHY2011JP10999

PATIENT
  Age: 67 Year
  Sex: Female

DRUGS (6)
  1. RITUXAN [Suspect]
     Dosage: 150 MG
  2. SIMULECT [Suspect]
     Indication: RENAL TRANSPLANT
     Route: 042
  3. PREDNISOLONE [Suspect]
     Indication: RENAL TRANSPLANT
     Dosage: 10 MG
     Route: 048
  4. PROGRAF [Suspect]
     Indication: RENAL TRANSPLANT
     Dosage: UNK
  5. CELLCEPT [Suspect]
     Indication: RENAL TRANSPLANT
     Dosage: 500 MG
     Route: 048
  6. RITUXAN [Suspect]
     Indication: RENAL TRANSPLANT
     Dosage: 150 MG

REACTIONS (5)
  - PROTEINURIA [None]
  - THROMBOCYTOPENIA [None]
  - NEUTROPENIA [None]
  - NEUTROPHIL COUNT DECREASED [None]
  - CYTOMEGALOVIRUS VIRAEMIA [None]
